FAERS Safety Report 5293912-0 (Version None)
Quarter: 2007Q2

REPORT INFORMATION
  Report Type: 
  Country: None (occurrence: None)
  Receive Date: 20070405
  Receipt Date: 20070323
  Transmission Date: 20071010
  Serious: Yes (Hospitalization)
  Sender: FDA-Public Use
  Company Number: 2007PV028726

PATIENT
  Age: 59 Year
  Sex: Female
  Weight: 79.3795 kg

DRUGS (27)
  1. BYETTA [Suspect]
     Indication: DIABETES MELLITUS NON-INSULIN-DEPENDENT
     Dosage: SEE IMAGE; SC
     Route: 058
     Dates: start: 20050901, end: 20050901
  2. BYETTA [Suspect]
     Indication: DIABETES MELLITUS NON-INSULIN-DEPENDENT
     Dosage: SEE IMAGE; SC
     Route: 058
     Dates: start: 20051001, end: 20051101
  3. BYETTA [Suspect]
     Indication: DIABETES MELLITUS NON-INSULIN-DEPENDENT
     Dosage: SEE IMAGE; SC
     Route: 058
     Dates: start: 20051101, end: 20061001
  4. BYETTA [Suspect]
     Indication: DIABETES MELLITUS NON-INSULIN-DEPENDENT
     Dosage: SEE IMAGE; SC
     Route: 058
     Dates: start: 20070115, end: 20070121
  5. METFORMIN HCL [Concomitant]
  6. PLAVIX [Concomitant]
  7. ASPIRIN [Concomitant]
  8. JANUVIA [Concomitant]
  9. ZOLOFT [Concomitant]
  10. ZOCOR [Concomitant]
  11. LISINOPRIL [Concomitant]
  12. HYDROCHLOROTHIAZIDE [Concomitant]
  13. GLYBURIDE [Concomitant]
  14. RANITIDINE [Concomitant]
  15. PREMARIN [Concomitant]
  16. PRENATAL VITAMINS [Concomitant]
  17. ADVAIR DISKUS 100/50 [Concomitant]
  18. ALBUTEROL [Concomitant]
  19. BECONASE [Concomitant]
  20. ZONEGRAN [Concomitant]
  21. TYLENOL [Concomitant]
  22. CALCIUM CARBONATE +D [Concomitant]
  23. CYCLOBENZAPRINE HCL [Concomitant]
  24. LOPERAMIDE HCL [Concomitant]
  25. SEREVENT [Concomitant]
  26. FLOVENT [Concomitant]
  27. ZANTAC [Concomitant]

REACTIONS (11)
  - ASTHENIA [None]
  - CONTUSION [None]
  - DIARRHOEA [None]
  - DIZZINESS [None]
  - HERPES ZOSTER [None]
  - INJECTION SITE BRUISING [None]
  - INJECTION SITE PAIN [None]
  - INJECTION SITE URTICARIA [None]
  - MUSCLE SPASMS [None]
  - NAUSEA [None]
  - TRANSIENT ISCHAEMIC ATTACK [None]
